FAERS Safety Report 6575875-0 (Version None)
Quarter: 2010Q1

REPORT INFORMATION
  Report Type: 
  Country: None (occurrence: None)
  Receive Date: 20100209
  Receipt Date: 20100129
  Transmission Date: 20100710
  Serious: Yes (Other)
  Sender: FDA-Public Use
  Company Number: US-JNJFOC-20100201825

PATIENT
  Sex: Female

DRUGS (1)
  1. SIMPLY SLEEP NIGHTTIME [Suspect]
     Indication: DRUG USE FOR UNKNOWN INDICATION
     Route: 048

REACTIONS (4)
  - COUGH [None]
  - GASTROINTESTINAL FUNGAL INFECTION [None]
  - LARYNGITIS [None]
  - PRODUCT QUALITY ISSUE [None]
